FAERS Safety Report 4584750-2 (Version None)
Quarter: 2005Q1

REPORT INFORMATION
  Report Type: 
  Country: None (occurrence: None)
  Receive Date: 20050217
  Receipt Date: 20050214
  Transmission Date: 20050727
  Serious: Yes (Death, Hospitalization)
  Sender: FDA-Public Use
  Company Number: PHBS2005JP02233

PATIENT
  Age: 75 Year
  Sex: Male
  Weight: 62 kg

DRUGS (3)
  1. LAMISIL [Suspect]
     Indication: TINEA BLANCA
     Route: 048
     Dates: start: 20041208, end: 20041215
  2. PAXIL [Suspect]
     Indication: DEPRESSION
     Route: 048
     Dates: start: 20041203, end: 20041215
  3. PAXIL [Suspect]
     Route: 048
     Dates: start: 20041218, end: 20041223

REACTIONS (6)
  - ALANINE AMINOTRANSFERASE INCREASED [None]
  - ASPARTATE AMINOTRANSFERASE INCREASED [None]
  - BLOOD BILIRUBIN INCREASED [None]
  - CHOLESTASIS [None]
  - MULTI-ORGAN FAILURE [None]
  - SEPSIS [None]
